FAERS Safety Report 18590781 (Version 1)
Quarter: 2020Q4

REPORT INFORMATION
  Report Type: Spontaneous
  Country: US (occurrence: US)
  Receive Date: 20201208
  Receipt Date: 20201208
  Transmission Date: 20210114
  Serious: Yes (Hospitalization)
  Sender: FDA-Public Use
  Company Number: US-ABBVIE-20K-163-3679128-00

PATIENT
  Age: 51 Year
  Sex: Female

DRUGS (6)
  1. VALPROIC ACID. [Suspect]
     Active Substance: VALPROIC ACID
     Dosage: DAY 4
     Route: 065
  2. VALPROIC ACID. [Suspect]
     Active Substance: VALPROIC ACID
     Dosage: UNTIL DAY 6
     Route: 065
  3. VALPROIC ACID. [Suspect]
     Active Substance: VALPROIC ACID
     Indication: SEIZURE
     Dosage: DAY 1, LOAD OF 20 MG/KG , ECMO
     Route: 042
  4. VALPROIC ACID. [Suspect]
     Active Substance: VALPROIC ACID
     Dosage: CONTINUED UNTIL DAY 4
     Route: 065
  5. VALPROIC ACID. [Suspect]
     Active Substance: VALPROIC ACID
     Dosage: DAY 6
     Route: 065
  6. VALPROIC ACID. [Suspect]
     Active Substance: VALPROIC ACID
     Indication: MYOCLONUS
     Dosage: DAY 2, 2 DOSES OF 240 MG WERE GIVEN 6 HOURS APART FOLLOWED BY 500 MG DOSE LATER IN EVENING
     Route: 065

REACTIONS (2)
  - Drug ineffective [Recovered/Resolved]
  - Anticonvulsant drug level increased [Recovered/Resolved]
